FAERS Safety Report 18699817 (Version 1)
Quarter: 2021Q1

REPORT INFORMATION
  Report Type: Spontaneous
  Country: CN (occurrence: CN)
  Receive Date: 20210105
  Receipt Date: 20210105
  Transmission Date: 20210419
  Serious: Yes (Other)
  Sender: FDA-Public Use
  Company Number: CN-ASTELLAS-2021US000134

PATIENT
  Age: 54 Year
  Sex: Male
  Weight: 45 kg

DRUGS (1)
  1. XTANDI [Suspect]
     Active Substance: ENZALUTAMIDE
     Indication: PRODUCT USED FOR UNKNOWN INDICATION
     Route: 065

REACTIONS (4)
  - Ill-defined disorder [Unknown]
  - Bone pain [Unknown]
  - Dysstasia [Unknown]
  - Malignant neoplasm progression [Unknown]
